FAERS Safety Report 4634096-9 (Version None)
Quarter: 2005Q2

REPORT INFORMATION
  Report Type: 
  Country: None (occurrence: None)
  Receive Date: 20050413
  Receipt Date: 20050408
  Transmission Date: 20051028
  Serious: Yes (Hospitalization, Disabling, Other)
  Sender: FDA-Public Use
  Company Number: US-GLAXOSMITHKLINE-A0553396A

PATIENT
  Sex: Female
  Weight: 75 kg

DRUGS (6)
  1. AVANDIA [Suspect]
     Dosage: .5TAB TWICE PER DAY
     Route: 048
     Dates: start: 20041101
  2. METFORMIN HCL [Suspect]
     Dosage: 850MG TWICE PER DAY
     Route: 048
     Dates: start: 20000701
  3. PRANDIN [Suspect]
     Dosage: .25MG TWICE PER DAY
     Dates: start: 20020101, end: 20041101
  4. TOPROL-XL [Concomitant]
     Indication: DRUG USE FOR UNKNOWN INDICATION
  5. COZAAR [Concomitant]
     Indication: DRUG USE FOR UNKNOWN INDICATION
  6. BEXTRA [Concomitant]
     Indication: DRUG USE FOR UNKNOWN INDICATION

REACTIONS (7)
  - ABDOMINAL DISTENSION [None]
  - ATRIAL FIBRILLATION [None]
  - HYPERTENSION [None]
  - HYPOGLYCAEMIA [None]
  - JOINT SWELLING [None]
  - OEDEMA [None]
  - WEIGHT INCREASED [None]
